FAERS Safety Report 13405975 (Version 2)
Quarter: 2017Q2

REPORT INFORMATION
  Report Type: Spontaneous
  Country: PL (occurrence: PL)
  Receive Date: 20170405
  Receipt Date: 20170407
  Transmission Date: 20170830
  Serious: Yes (Hospitalization)
  Sender: FDA-Public Use
  Company Number: PL-B.I. PHARMACEUTICALS,INC./RIDGEFIELD-2017-BI-018136

PATIENT
  Age: 63 Year
  Sex: Female
  Weight: 59.3 kg

DRUGS (1)
  1. JARDIANCE [Suspect]
     Active Substance: EMPAGLIFLOZIN
     Indication: LATENT AUTOIMMUNE DIABETES IN ADULTS
     Route: 048
     Dates: start: 20170303, end: 20170326

REACTIONS (2)
  - Diabetic ketoacidosis [Recovering/Resolving]
  - Altered state of consciousness [Recovering/Resolving]

NARRATIVE: CASE EVENT DATE: 20170327
